FAERS Safety Report 8950773 (Version 1)
Quarter: 2012Q4

REPORT INFORMATION
  Report Type: 
  Country: CA (occurrence: CA)
  Receive Date: 20121207
  Receipt Date: 20121207
  Transmission Date: 20130627
  Serious: Yes (Hospitalization)
  Sender: FDA-Public Use
  Company Number: CA-AMGEN-CANSP2012074580

PATIENT
  Age: 59 Year
  Sex: Male
  Weight: 109 kg

DRUGS (6)
  1. ENBREL [Suspect]
     Indication: RHEUMATOID ARTHRITIS
     Dosage: 50 mg, qwk
     Route: 058
     Dates: start: 20120405
  2. METHOTREXATE [Suspect]
     Indication: RHEUMATOID ARTHRITIS
     Dosage: 2.5 mg, qwk
     Route: 048
     Dates: start: 2008
  3. PREDNISONE [Concomitant]
     Dosage: 5 mg, qd
     Route: 048
  4. TYLENOL ARTHRITIS [Concomitant]
     Dosage: UNK
  5. FOLATE [Concomitant]
     Dosage: 1 mg, qd
     Route: 048
     Dates: start: 2010
  6. TYLENOL /00020001/ [Concomitant]
     Dosage: 650 mg, q6h
     Dates: start: 2008

REACTIONS (5)
  - Infection [Recovered/Resolved]
  - Erythema [Recovered/Resolved]
  - Oedema peripheral [Recovered/Resolved]
  - Cellulitis [Recovered/Resolved]
  - Scratch [Recovered/Resolved]
